FAERS Safety Report 8419104-1 (Version None)
Quarter: 2012Q2

REPORT INFORMATION
  Report Type: 
  Country: None (occurrence: None)
  Receive Date: 20120607
  Receipt Date: 20120326
  Transmission Date: 20120825
  Serious: Yes (Hospitalization)
  Sender: FDA-Public Use
  Company Number: ES-ROCHE-1023206

PATIENT
  Sex: Male

DRUGS (6)
  1. SEVELAMER [Concomitant]
     Indication: RENAL FAILURE CHRONIC
     Route: 048
  2. EPOETIN [Concomitant]
     Indication: ANAEMIA
  3. LEVOTHYROXINE SODIUM [Concomitant]
     Route: 048
  4. ACTEMRA [Suspect]
     Indication: RHEUMATOID ARTHRITIS
     Route: 042
     Dates: start: 20101110
  5. PREDNISONE [Concomitant]
     Indication: RHEUMATOID ARTHRITIS
     Route: 048
  6. ATORVASTATIN CALCIUM [Concomitant]
     Route: 048

REACTIONS (1)
  - PYREXIA [None]
